FAERS Safety Report 4874982-8 (Version None)
Quarter: 2006Q1

REPORT INFORMATION
  Report Type: 
  Country: None (occurrence: None)
  Receive Date: 20060104
  Receipt Date: 20051221
  Transmission Date: 20060701
  Serious: Yes (Other)
  Sender: FDA-Public Use
  Company Number: 2005159153

PATIENT
  Age: 32 Year
  Sex: Female

DRUGS (6)
  1. RELPAX [Suspect]
     Indication: MIGRAINE
     Dosage: ^4 TO 6 TABLETS A DAY^ (40 MG)
     Dates: start: 20020801
  2. CODEINE (CODEINE) [Suspect]
     Indication: MIGRAINE
  3. OXETORONE FUMARATE (OXETORONE FUMARATE) [Concomitant]
  4. PARACETAMOL (PARACETAMOL) [Concomitant]
  5. CONTRACEPTIVE (CONTRACEPTIVE) [Concomitant]
  6. ALL OTHER THERAPEUTIC PRODUCTS (ALL OTHER THERAPEUTIC PRODUCTS) [Concomitant]

REACTIONS (5)
  - ANXIETY [None]
  - ASPARTATE AMINOTRANSFERASE INCREASED [None]
  - DRUG ABUSER [None]
  - DRUG DEPENDENCE [None]
  - DRUG WITHDRAWAL SYNDROME [None]
